FAERS Safety Report 19769391 (Version 3)
Quarter: 2023Q4

REPORT INFORMATION
  Report Type: Report from Study
  Country: IT (occurrence: IT)
  Receive Date: 20210831
  Receipt Date: 20231026
  Transmission Date: 20240109
  Serious: Yes (Other)
  Sender: FDA-Public Use
  Company Number: IT-TAKEDA-2021TUS048198

PATIENT
  Age: 53 Year
  Sex: Male
  Weight: 50 kg

DRUGS (14)
  1. TEDUGLUTIDE [Suspect]
     Active Substance: TEDUGLUTIDE
     Indication: Short-bowel syndrome
     Dosage: 1.25 MILLIGRAM
     Route: 042
     Dates: start: 20210525, end: 20210614
  2. TEDUGLUTIDE [Suspect]
     Active Substance: TEDUGLUTIDE
     Indication: Short-bowel syndrome
     Dosage: 1.25 MILLIGRAM
     Route: 042
     Dates: start: 20210525, end: 20210614
  3. TEDUGLUTIDE [Suspect]
     Active Substance: TEDUGLUTIDE
     Indication: Short-bowel syndrome
     Dosage: 1.25 MILLIGRAM
     Route: 042
     Dates: start: 20210525, end: 20210614
  4. TEDUGLUTIDE [Suspect]
     Active Substance: TEDUGLUTIDE
     Indication: Short-bowel syndrome
     Dosage: 1.25 MILLIGRAM
     Route: 042
     Dates: start: 20210525, end: 20210614
  5. TEDUGLUTIDE [Suspect]
     Active Substance: TEDUGLUTIDE
     Dosage: 1.25 MILLIGRAM
     Route: 042
     Dates: start: 20210619
  6. TEDUGLUTIDE [Suspect]
     Active Substance: TEDUGLUTIDE
     Dosage: 1.25 MILLIGRAM
     Route: 042
     Dates: start: 20210619
  7. TEDUGLUTIDE [Suspect]
     Active Substance: TEDUGLUTIDE
     Dosage: 1.25 MILLIGRAM
     Route: 042
     Dates: start: 20210619
  8. TEDUGLUTIDE [Suspect]
     Active Substance: TEDUGLUTIDE
     Dosage: 1.25 MILLIGRAM
     Route: 042
     Dates: start: 20210619
  9. CALCIUM CARBONATE [Concomitant]
     Active Substance: CALCIUM CARBONATE
     Indication: Short-bowel syndrome
     Dosage: 1 INTERNATIONAL UNIT, BID
     Route: 048
  10. AMLODIPINE BESYLATE\PERINDOPRIL ARGININE [Concomitant]
     Active Substance: AMLODIPINE BESYLATE\PERINDOPRIL ARGININE
     Indication: Hypertension
     Dosage: 999 MILLIGRAM, QD
     Route: 048
     Dates: start: 20191112, end: 20210929
  11. NERIDRONIC ACID [Concomitant]
     Active Substance: NERIDRONIC ACID
     Indication: Osteoporosis
     Dosage: 25 MILLIGRAM, MONTHLY
     Route: 030
     Dates: start: 20210624
  12. NERIDRONIC ACID [Concomitant]
     Active Substance: NERIDRONIC ACID
     Dosage: 25 MILLIGRAM, MONTHLY
     Route: 030
     Dates: start: 20190724
  13. POTASSIUM CHLORIDE [Concomitant]
     Active Substance: POTASSIUM CHLORIDE
     Indication: Nutritional supplementation
     Dosage: 1 INTERNATIONAL UNIT, 15 DAYS PER MONTH
     Route: 048
     Dates: start: 20160406
  14. MAGNESIUM [Concomitant]
     Active Substance: MAGNESIUM
     Indication: Muscle spasms
     Dosage: UNK UNK, QD
     Route: 048
     Dates: start: 20210901, end: 20210910

REACTIONS (1)
  - Intestinal obstruction [Recovered/Resolved]

NARRATIVE: CASE EVENT DATE: 20210614
